FAERS Safety Report 8198305 (Version 4)
Quarter: 2013Q2

REPORT INFORMATION
  Report Type: Spontaneous
  Country: JP (occurrence: JP)
  Receive Date: 20111025
  Receipt Date: 20130410
  Transmission Date: 20140414
  Serious: Yes (Life-Threatening, Other)
  Sender: FDA-Public Use
  Company Number: JP-ROCHE-1001444

PATIENT
  Age: 34 Year
  Sex: Female
  Weight: 44 kg

DRUGS (12)
  1. TAMIFLU [Suspect]
     Indication: INFLUENZA
     Dosage: DOSAGE IS UNCERTAIN.
     Route: 048
     Dates: start: 20110212, end: 20110216
  2. TAMIFLU [Suspect]
     Indication: INFLUENZA
  3. ANYRUME [Suspect]
     Indication: INFLUENZA
     Dosage: 2GX1-TWICE/DAY
     Route: 048
     Dates: start: 20110211, end: 20110215
  4. MAOTO [Concomitant]
     Indication: INFLUENZA
     Dosage: SINGLE DOSE ADMINISTRATION
     Route: 048
     Dates: start: 20110212, end: 20110212
  5. TOWATHIEM [Concomitant]
     Dosage: DOSAGE IS UNCERTAIN.
     Route: 048
     Dates: start: 20110212, end: 20110216
  6. MAIBASTAN [Concomitant]
     Indication: HYPERLIPIDAEMIA
     Dosage: DOSAGE IS UNCERTAIN.
     Route: 048
     Dates: start: 20110203, end: 20110222
  7. TRIMETOQUINOL HYDROCHLORIDE [Concomitant]
     Indication: BRONCHITIS
     Route: 048
     Dates: start: 20110216, end: 20110218
  8. BISOPOLLON [Concomitant]
     Indication: BRONCHITIS
     Route: 048
     Dates: start: 20110216, end: 20110218
  9. METHISTA [Concomitant]
     Indication: BRONCHITIS
     Route: 048
     Dates: start: 20110216, end: 20110218
  10. FAD [Concomitant]
     Indication: ECZEMA
     Route: 048
     Dates: start: 20110216, end: 20110302
  11. EPINASTINE HYDROCHLORIDE [Concomitant]
     Indication: ECZEMA
     Route: 048
     Dates: start: 20110216, end: 20110301
  12. TRANEXAMIC ACID [Concomitant]
     Indication: ECZEMA
     Route: 048
     Dates: start: 20110216, end: 20110302

REACTIONS (4)
  - Stevens-Johnson syndrome [Recovered/Resolved]
  - Drug-induced liver injury [Unknown]
  - Eczema [Unknown]
  - Bronchitis [Unknown]
